FAERS Safety Report 4612590-4 (Version None)
Quarter: 2005Q1

REPORT INFORMATION
  Report Type: 
  Country: None (occurrence: None)
  Receive Date: 20050318
  Receipt Date: 20050314
  Transmission Date: 20050727
  Serious: Yes (Other)
  Sender: FDA-Public Use
  Company Number: 200512301GDDC

PATIENT
  Age: 69 Year
  Sex: Female
  Weight: 73 kg

DRUGS (5)
  1. LANTUS [Suspect]
     Indication: DIABETES MELLITUS
     Route: 058
     Dates: start: 20040913
  2. CLOPIDOGREL [Concomitant]
     Indication: ANTIPLATELET THERAPY
  3. SIMVASTATIN [Concomitant]
     Indication: HYPERCHOLESTEROLAEMIA
  4. GLIMEPIRIDE [Concomitant]
     Indication: DIABETES MELLITUS
  5. NIFEDIPINE [Concomitant]
     Indication: BLOOD PRESSURE INCREASED

REACTIONS (1)
  - DIARRHOEA [None]
